FAERS Safety Report 17575950 (Version 5)
Quarter: 2022Q4

REPORT INFORMATION
  Report Type: Spontaneous
  Country: US (occurrence: US)
  Receive Date: 20200324
  Receipt Date: 20221011
  Transmission Date: 20230113
  Serious: No
  Sender: FDA-Public Use
  Company Number: US-VERTEX PHARMACEUTICALS-2020-002661

PATIENT
  Sex: Female

DRUGS (12)
  1. TRIKAFTA [Suspect]
     Active Substance: ELEXACAFTOR\IVACAFTOR\TEZACAFTOR
     Indication: Cystic fibrosis
     Dosage: 2 ORANGE TABS AM AND 1 BLUE TAB PM
     Route: 048
     Dates: start: 20191207
  2. VEST [Concomitant]
     Dosage: UNK
     Dates: end: 2020
  3. PULMOZYME [Concomitant]
     Active Substance: DORNASE ALFA
     Dosage: UNK
     Dates: end: 2020
  4. SALINE [Concomitant]
     Active Substance: SODIUM CHLORIDE
  5. ALBUTEROL SULFATE [Concomitant]
     Active Substance: ALBUTEROL SULFATE
  6. ALBUTEROL SULFATE [Concomitant]
     Active Substance: ALBUTEROL SULFATE
  7. CREON [Concomitant]
     Active Substance: PANCRELIPASE AMYLASE\PANCRELIPASE LIPASE\PANCRELIPASE PROTEASE
     Dosage: 24-76-120K CAPSULE DR
  8. OMEPRAZOLE [Concomitant]
     Active Substance: OMEPRAZOLE
  9. FERROUS SULFATE [Concomitant]
     Active Substance: FERROUS SULFATE
     Dosage: 325 (65) MG TAB
  10. VITAMIN K [Concomitant]
     Active Substance: PHYTONADIONE
  11. AZITHROMYCIN [Concomitant]
     Active Substance: AZITHROMYCIN
  12. URSODIOL [Concomitant]
     Active Substance: URSODIOL

REACTIONS (5)
  - Infective pulmonary exacerbation of cystic fibrosis [Recovered/Resolved]
  - Haemoptysis [Recovered/Resolved]
  - Acne cystic [Not Recovered/Not Resolved]
  - Influenza [Unknown]
  - Nasopharyngitis [Recovered/Resolved]

NARRATIVE: CASE EVENT DATE: 20200101
